FAERS Safety Report 11920291 (Version 2)
Quarter: 2016Q1

REPORT INFORMATION
  Report Type: Spontaneous
  Country: US (occurrence: US)
  Receive Date: 20160115
  Receipt Date: 20160323
  Transmission Date: 20160526
  Serious: No
  Sender: FDA-Public Use
  Company Number: US-009507513-1601USA004499

PATIENT
  Age: 21 Year
  Sex: Female
  Weight: 79.37 kg

DRUGS (3)
  1. IMPLANON [Suspect]
     Active Substance: ETONOGESTREL
     Indication: CONTRACEPTION
     Dosage: 3 YEAR IMPLANT
     Route: 058
     Dates: start: 20160113
  2. IBUPROFEN (+) ACETAMINOPHEN [Concomitant]
     Indication: PAIN
     Dosage: 20 MG, Q6H
     Route: 048
  3. IMPLANON [Suspect]
     Active Substance: ETONOGESTREL
     Indication: MENSTRUAL CYCLE MANAGEMENT

REACTIONS (1)
  - Costochondritis [Recovered/Resolved]

NARRATIVE: CASE EVENT DATE: 20160117
